FAERS Safety Report 5246812-6 (Version None)
Quarter: 2007Q1

REPORT INFORMATION
  Report Type: 
  Country: None (occurrence: None)
  Receive Date: 20070226
  Receipt Date: 20070214
  Transmission Date: 20070707
  Serious: Yes (Hospitalization)
  Sender: FDA-Public Use
  Company Number: PT-PFIZER INC-2007013117

PATIENT
  Sex: Male

DRUGS (2)
  1. ZYVOXID TABLET [Suspect]
     Indication: STAPHYLOCOCCAL INFECTION
     Route: 048
  2. CORTICOSTEROIDS [Concomitant]

REACTIONS (1)
  - PATHOGEN RESISTANCE [None]
